FAERS Safety Report 13238137 (Version 2)
Quarter: 2017Q1

REPORT INFORMATION
  Report Type: Spontaneous
  Country: JP (occurrence: JP)
  Receive Date: 20170216
  Receipt Date: 20170223
  Transmission Date: 20170428
  Serious: Yes (Other)
  Sender: FDA-Public Use
  Company Number: JP-ROCHE-1893617

PATIENT
  Age: 45 Year
  Sex: Female

DRUGS (1)
  1. TAMIFLU [Suspect]
     Active Substance: OSELTAMIVIR PHOSPHATE
     Indication: INFLUENZA
     Route: 048
     Dates: start: 20170206, end: 20170206

REACTIONS (6)
  - Electrocardiogram ST segment depression [Unknown]
  - Head injury [Unknown]
  - Diarrhoea [Unknown]
  - Loss of consciousness [Recovered/Resolved]
  - Fall [Unknown]
  - Abdominal discomfort [Unknown]

NARRATIVE: CASE EVENT DATE: 20170206
